FAERS Safety Report 10136725 (Version 1)
Quarter: 2014Q2

REPORT INFORMATION
  Report Type: Spontaneous
  Country: US (occurrence: None)
  Receive Date: 20140428
  Receipt Date: 20140428
  Transmission Date: 20141212
  Serious: Yes (Life-Threatening, Other)
  Sender: FDA-Public Use
  Company Number: None

PATIENT
  Age: 70 Year
  Sex: Female
  Weight: 89.81 kg

DRUGS (4)
  1. ELMIRON [Suspect]
     Indication: BLADDER DISORDER
     Dosage: 100 MG, 1 PILL, 3X DAY, BY MOUTH
     Route: 048
     Dates: start: 20140321, end: 20140324
  2. LISINOPRIL/HCTZ 20/25MG [Concomitant]
  3. ATENOLOL 50 MG [Concomitant]
  4. TYNOL [Concomitant]

REACTIONS (6)
  - Headache [None]
  - Dizziness [None]
  - Asthenia [None]
  - Loss of consciousness [None]
  - Heart rate increased [None]
  - Skin haemorrhage [None]
